FAERS Safety Report 5316118-5 (Version None)
Quarter: 2007Q2

REPORT INFORMATION
  Report Type: 
  Country: None (occurrence: None)
  Receive Date: 20070503
  Receipt Date: 20070430
  Transmission Date: 20071010
  Serious: Yes (Hospitalization)
  Sender: FDA-Public Use
  Company Number: US-ELI_LILLY_AND_COMPANY-US200704006469

PATIENT

DRUGS (1)
  1. HUMALOG [Suspect]
     Dates: start: 20050101

REACTIONS (2)
  - RENAL DISORDER [None]
  - RENAL FAILURE [None]
